FAERS Safety Report 25051109 (Version 1)
Quarter: 2025Q1

REPORT INFORMATION
  Report Type: Spontaneous
  Country: US (occurrence: US)
  Receive Date: 20250307
  Receipt Date: 20250307
  Transmission Date: 20250409
  Serious: No
  Sender: SAMSUNG BIOEPIS
  Company Number: US-SAMSUNG BIOEPIS-SB-2024-25652

PATIENT
  Sex: Male

DRUGS (2)
  1. HADLIMA [Suspect]
     Active Substance: ADALIMUMAB-BWWD
     Indication: Psoriatic arthropathy
     Dates: start: 202403, end: 20240729
  2. HADLIMA [Suspect]
     Active Substance: ADALIMUMAB-BWWD
     Indication: Psoriasis

REACTIONS (1)
  - Hepatic enzyme increased [Not Recovered/Not Resolved]

NARRATIVE: CASE EVENT DATE: 20240722
